FAERS Safety Report 16828239 (Version 1)
Quarter: 2019Q3

REPORT INFORMATION
  Report Type: Spontaneous
  Country: US (occurrence: US)
  Receive Date: 20190919
  Receipt Date: 20190919
  Transmission Date: 20191005
  Serious: No
  Sender: FDA-Public Use
  Company Number: US-FERRINGPH-2019FE03734

PATIENT
  Age: 32 Year
  Sex: Male

DRUGS (1)
  1. CLENPIQ [Suspect]
     Active Substance: ANHYDROUS CITRIC ACID\MAGNESIUM OXIDE\SODIUM PICOSULFATE
     Indication: BOWEL PREPARATION
     Route: 048

REACTIONS (4)
  - Treatment noncompliance [Unknown]
  - Abdominal distension [Unknown]
  - Drug ineffective [Unknown]
  - Pain [Unknown]
